FAERS Safety Report 13659468 (Version 1)
Quarter: 2017Q2

REPORT INFORMATION
  Report Type: Spontaneous
  Country: US (occurrence: US)
  Receive Date: 20170615
  Receipt Date: 20170615
  Transmission Date: 20170830
  Serious: Yes (Death)
  Sender: FDA-Public Use
  Company Number: None

PATIENT
  Age: 74 Year
  Sex: Male
  Weight: 58.05 kg

DRUGS (2)
  1. GILOTRIF [Concomitant]
     Active Substance: AFATINIB
  2. TARCEVA [Suspect]
     Active Substance: ERLOTINIB HYDROCHLORIDE
     Indication: NON-SMALL CELL LUNG CANCER METASTATIC
     Dates: start: 20161013, end: 20170614

REACTIONS (1)
  - Death [None]

NARRATIVE: CASE EVENT DATE: 20170614
